FAERS Safety Report 19899241 (Version 4)
Quarter: 2021Q4

REPORT INFORMATION
  Report Type: Spontaneous
  Country: US (occurrence: US)
  Receive Date: 20210929
  Receipt Date: 20211025
  Transmission Date: 20220303
  Serious: Yes (Other)
  Sender: FDA-Public Use
  Company Number: US-PFIZER INC-202101282989

PATIENT
  Age: 75 Year

DRUGS (1)
  1. PREMARIN [Suspect]
     Active Substance: ESTROGENS, CONJUGATED
     Dosage: 0.3 MG

REACTIONS (9)
  - Drug dependence [Unknown]
  - Fatigue [Unknown]
  - Malaise [Unknown]
  - Insomnia [Unknown]
  - Paranoia [Unknown]
  - Anxiety [Unknown]
  - Product distribution issue [Unknown]
  - Product prescribing error [Unknown]
  - Product dose omission issue [Unknown]
